FAERS Safety Report 25413451 (Version 1)
Quarter: 2025Q2

REPORT INFORMATION
  Report Type: Spontaneous
  Country: FR (occurrence: FR)
  Receive Date: 20250609
  Receipt Date: 20250609
  Transmission Date: 20250717
  Serious: Yes (Hospitalization)
  Sender: MYLAN
  Company Number: None

PATIENT
  Age: 79 Year
  Sex: Female
  Weight: 57 kg

DRUGS (36)
  1. TICAGRELOR [Suspect]
     Active Substance: TICAGRELOR
     Indication: Myocardial infarction
     Dosage: 90 MILLIGRAM, BID (12 HOURS)
     Dates: start: 202504, end: 20250514
  2. TICAGRELOR [Suspect]
     Active Substance: TICAGRELOR
     Dosage: 90 MILLIGRAM, BID (12 HOURS)
     Route: 065
     Dates: start: 202504, end: 20250514
  3. TICAGRELOR [Suspect]
     Active Substance: TICAGRELOR
     Dosage: 90 MILLIGRAM, BID (12 HOURS)
     Route: 065
     Dates: start: 202504, end: 20250514
  4. TICAGRELOR [Suspect]
     Active Substance: TICAGRELOR
     Dosage: 90 MILLIGRAM, BID (12 HOURS)
     Dates: start: 202504, end: 20250514
  5. ATORVASTATIN [Suspect]
     Active Substance: ATORVASTATIN
     Indication: Myocardial infarction
  6. ATORVASTATIN [Suspect]
     Active Substance: ATORVASTATIN
     Route: 065
  7. ATORVASTATIN [Suspect]
     Active Substance: ATORVASTATIN
     Route: 065
  8. ATORVASTATIN [Suspect]
     Active Substance: ATORVASTATIN
  9. EZETIMIBE [Suspect]
     Active Substance: EZETIMIBE
     Indication: Myocardial infarction
     Dates: start: 20250514, end: 20250516
  10. EZETIMIBE [Suspect]
     Active Substance: EZETIMIBE
     Route: 065
     Dates: start: 20250514, end: 20250516
  11. EZETIMIBE [Suspect]
     Active Substance: EZETIMIBE
     Route: 065
     Dates: start: 20250514, end: 20250516
  12. EZETIMIBE [Suspect]
     Active Substance: EZETIMIBE
     Dates: start: 20250514, end: 20250516
  13. KARDEGIC [Concomitant]
     Active Substance: ASPIRIN DL-LYSINE
  14. KARDEGIC [Concomitant]
     Active Substance: ASPIRIN DL-LYSINE
     Route: 065
  15. KARDEGIC [Concomitant]
     Active Substance: ASPIRIN DL-LYSINE
     Route: 065
  16. KARDEGIC [Concomitant]
     Active Substance: ASPIRIN DL-LYSINE
  17. PERINDOPRIL [Concomitant]
     Active Substance: PERINDOPRIL
  18. PERINDOPRIL [Concomitant]
     Active Substance: PERINDOPRIL
     Route: 065
  19. PERINDOPRIL [Concomitant]
     Active Substance: PERINDOPRIL
     Route: 065
  20. PERINDOPRIL [Concomitant]
     Active Substance: PERINDOPRIL
  21. BISOPROLOL FUMARATE [Concomitant]
     Active Substance: BISOPROLOL FUMARATE
  22. BISOPROLOL FUMARATE [Concomitant]
     Active Substance: BISOPROLOL FUMARATE
     Route: 065
  23. BISOPROLOL FUMARATE [Concomitant]
     Active Substance: BISOPROLOL FUMARATE
     Route: 065
  24. BISOPROLOL FUMARATE [Concomitant]
     Active Substance: BISOPROLOL FUMARATE
  25. NITROGLYCERIN [Concomitant]
     Active Substance: NITROGLYCERIN
  26. NITROGLYCERIN [Concomitant]
     Active Substance: NITROGLYCERIN
     Route: 065
  27. NITROGLYCERIN [Concomitant]
     Active Substance: NITROGLYCERIN
     Route: 065
  28. NITROGLYCERIN [Concomitant]
     Active Substance: NITROGLYCERIN
  29. CALCIUM CARBONATE\CHOLECALCIFEROL [Concomitant]
     Active Substance: CALCIUM CARBONATE\CHOLECALCIFEROL
  30. CALCIUM CARBONATE\CHOLECALCIFEROL [Concomitant]
     Active Substance: CALCIUM CARBONATE\CHOLECALCIFEROL
     Route: 065
  31. CALCIUM CARBONATE\CHOLECALCIFEROL [Concomitant]
     Active Substance: CALCIUM CARBONATE\CHOLECALCIFEROL
     Route: 065
  32. CALCIUM CARBONATE\CHOLECALCIFEROL [Concomitant]
     Active Substance: CALCIUM CARBONATE\CHOLECALCIFEROL
  33. CHOLECALCIFEROL [Concomitant]
     Active Substance: CHOLECALCIFEROL
  34. CHOLECALCIFEROL [Concomitant]
     Active Substance: CHOLECALCIFEROL
     Route: 065
  35. CHOLECALCIFEROL [Concomitant]
     Active Substance: CHOLECALCIFEROL
     Route: 065
  36. CHOLECALCIFEROL [Concomitant]
     Active Substance: CHOLECALCIFEROL

REACTIONS (1)
  - Hepatitis [Recovering/Resolving]

NARRATIVE: CASE EVENT DATE: 20250516
